FAERS Safety Report 5952284-6 (Version None)
Quarter: 2008Q4

REPORT INFORMATION
  Report Type: 
  Country: None (occurrence: None)
  Receive Date: 20081113
  Receipt Date: 20081110
  Transmission Date: 20090506
  Serious: Yes (Hospitalization)
  Sender: FDA-Public Use
  Company Number: CN-WATSON-2008-06628

PATIENT
  Age: 26 Year
  Sex: Female

DRUGS (3)
  1. TRELSTAR DEPOT [Suspect]
     Indication: ENDOMETRIOSIS
     Dosage: 3.75MG X 1 ON 21-OCT-2008
     Route: 030
     Dates: start: 20081021, end: 20081021
  2. TRELSTAR DEPOT [Suspect]
     Dosage: 3.75MG X 1 ON 23-SEP-2008
     Route: 030
     Dates: start: 20080923, end: 20080923
  3. TRELSTAR DEPOT [Suspect]
     Dosage: 3.75MG X 1 ON 26-AUG-2008
     Route: 030
     Dates: start: 20080826, end: 20080826

REACTIONS (1)
  - PYREXIA [None]
